FAERS Safety Report 7427644-7 (Version None)
Quarter: 2011Q1

REPORT INFORMATION
  Report Type: 
  Country: None (occurrence: None)
  Receive Date: 20110302
  Receipt Date: 20101112
  Transmission Date: 20110831
  Serious: No
  Sender: FDA-Public Use
  Company Number: 018378

PATIENT
  Sex: Male
  Weight: 173 kg

DRUGS (3)
  1. CIMZIA [Suspect]
     Indication: CROHN'S DISEASE
     Dosage: (2 INJECTIONS SUBCUTANEOUS)
     Route: 058
     Dates: start: 20090901
  2. MERCAPTOPURINE [Concomitant]
  3. PROTONIX [Concomitant]

REACTIONS (4)
  - FUNGAL INFECTION [None]
  - COUGH [None]
  - OROPHARYNGEAL PAIN [None]
  - FATIGUE [None]
